FAERS Safety Report 15227151 (Version 1)
Quarter: 2018Q3

REPORT INFORMATION
  Report Type: Report from Study
  Country: US (occurrence: US)
  Receive Date: 20180801
  Receipt Date: 20180801
  Transmission Date: 20181010
  Serious: Yes (Hospitalization, Other)
  Sender: FDA-Public Use
  Company Number: US-MALLINCKRODT-T201802962

PATIENT
  Age: 55 Year
  Sex: Male

DRUGS (3)
  1. REPOSITORY CORTICOTROPIN INJECTION [Suspect]
     Active Substance: CORTICOTROPIN
     Indication: UVEITIS
     Dosage: 80 UNITS DAILY FOR 5 DAYS
     Route: 058
     Dates: start: 20180712, end: 20180716
  2. ASPIRIN. [Concomitant]
     Active Substance: ASPIRIN
     Indication: PRODUCT USED FOR UNKNOWN INDICATION
     Dosage: UNK
     Route: 065
  3. REPOSITORY CORTICOTROPIN INJECTION [Suspect]
     Active Substance: CORTICOTROPIN
     Indication: ULCERATIVE KERATITIS

REACTIONS (8)
  - Generalised oedema [Unknown]
  - Volvulus [Unknown]
  - Wrong schedule [Not Recovered/Not Resolved]
  - Drug dispensing error [Unknown]
  - Drug interaction [Unknown]
  - Weight increased [Unknown]
  - Pancreatitis [Unknown]
  - Hyperhidrosis [Unknown]

NARRATIVE: CASE EVENT DATE: 201807
